FAERS Safety Report 5964000-2 (Version None)
Quarter: 2008Q4

REPORT INFORMATION
  Report Type: 
  Country: None (occurrence: None)
  Receive Date: 20081124
  Receipt Date: 20081120
  Transmission Date: 20090506
  Serious: Yes (Death)
  Sender: FDA-Public Use
  Company Number: CN-ASTRAZENECA-2008AP08041

PATIENT
  Age: 78 Year
  Sex: Male

DRUGS (2)
  1. IRESSA [Suspect]
     Indication: LUNG CANCER METASTATIC
     Route: 048
     Dates: start: 20080801, end: 20080901
  2. IRESSA [Suspect]
     Route: 048
     Dates: start: 20080901, end: 20081001

REACTIONS (1)
  - PULMONARY EMBOLISM [None]
